FAERS Safety Report 19181539 (Version 12)
Quarter: 2021Q4

REPORT INFORMATION
  Report Type: Report from Study
  Country: NZ (occurrence: NZ)
  Receive Date: 20210426
  Receipt Date: 20211103
  Transmission Date: 20220303
  Serious: Yes (Hospitalization)
  Sender: FDA-Public Use
  Company Number: NZ-CELGENE-NZL-20210404803

PATIENT
  Age: 53 Year
  Sex: Male

DRUGS (11)
  1. OZANIMOD [Suspect]
     Active Substance: OZANIMOD
     Indication: Relapsing multiple sclerosis
     Dosage: 1 MILLIGRAM
     Route: 048
     Dates: start: 20161015, end: 20210216
  2. CHOLECALCIFEROL [Concomitant]
     Active Substance: CHOLECALCIFEROL
     Indication: Supplementation therapy
     Dosage: 1.25 MILLIGRAM
     Route: 048
     Dates: start: 20140404
  3. BACLOFEN [Concomitant]
     Active Substance: BACLOFEN
     Indication: Muscle spasms
     Dosage: 30 MILLIGRAM
     Route: 048
     Dates: start: 20141028
  4. Redseal Mens Multivitamin [Concomitant]
     Indication: Supplementation therapy
     Dosage: 1 TABLET
     Route: 048
     Dates: start: 20160910
  5. SYMBICORT [Concomitant]
     Active Substance: BUDESONIDE\FORMOTEROL FUMARATE DIHYDRATE
     Indication: Asthma
     Dosage: 160/4.5 MCG
     Route: 045
     Dates: start: 20170620
  6. LOPERAMIDE [Concomitant]
     Active Substance: LOPERAMIDE
     Indication: Diarrhoea
     Dosage: 2 MILLIGRAM
     Route: 048
     Dates: start: 20190301
  7. DALFAMPRIDINE [Concomitant]
     Active Substance: DALFAMPRIDINE
     Indication: Mobility decreased
     Dosage: 20 MILLIGRAM
     Route: 048
     Dates: start: 20190301
  8. Emtricitabine 200 mg + Tenofovir 245 mg [Concomitant]
     Indication: Prophylaxis
     Dosage: 200+245 MG
     Route: 048
     Dates: start: 20190809
  9. CETIRIZINE [Concomitant]
     Active Substance: CETIRIZINE HYDROCHLORIDE
     Indication: Seasonal allergy
     Dosage: 10 MILLIGRAM
     Route: 048
     Dates: start: 20200129
  10. ZOPICLONE [Concomitant]
     Active Substance: ZOPICLONE
     Indication: Insomnia
     Route: 048
     Dates: start: 20200129
  11. Budesonide+Eformoterol [Concomitant]
     Indication: Asthma
     Dosage: 200/6 MCG
     Route: 065
     Dates: start: 20200129

REACTIONS (1)
  - Staphylococcal infection [Recovered/Resolved]

NARRATIVE: CASE EVENT DATE: 20210216
